FAERS Safety Report 16106447 (Version 1)
Quarter: 2019Q1

REPORT INFORMATION
  Report Type: Report from Study
  Country: US (occurrence: US)
  Receive Date: 20190322
  Receipt Date: 20190322
  Transmission Date: 20190418
  Serious: Yes (Death, Hospitalization)
  Sender: FDA-Public Use
  Company Number: US-ACTELION-A-US2019-186380

PATIENT
  Age: 75 Year
  Sex: Male

DRUGS (3)
  1. VELETRI [Suspect]
     Active Substance: EPOPROSTENOL
     Indication: PULMONARY ARTERIAL HYPERTENSION
     Dosage: 17 NG/KG, PER MIN
     Route: 042
     Dates: start: 20190119
  2. TRACLEER [Suspect]
     Active Substance: BOSENTAN
     Indication: PULMONARY ARTERIAL HYPERTENSION
     Dosage: 125 MG, BID
     Route: 048
  3. SILDENAFIL. [Concomitant]
     Active Substance: SILDENAFIL
     Dosage: 20 MG, TID

REACTIONS (10)
  - Dyspnoea [Unknown]
  - Diarrhoea [Unknown]
  - Pulmonary oedema [Fatal]
  - Oxygen saturation decreased [Unknown]
  - Headache [Unknown]
  - Feeling abnormal [Unknown]
  - Fluid overload [Fatal]
  - Pain in jaw [Unknown]
  - Oedema peripheral [Fatal]
  - Oedema [Fatal]

NARRATIVE: CASE EVENT DATE: 20190304
